FAERS Safety Report 8389231-6 (Version None)
Quarter: 2012Q2

REPORT INFORMATION
  Report Type: 
  Country: None (occurrence: None)
  Receive Date: 20120528
  Receipt Date: 20120522
  Transmission Date: 20120825
  Serious: No
  Sender: FDA-Public Use
  Company Number: US-PFIZER INC-2012123884

PATIENT
  Sex: Male
  Weight: 58.05 kg

DRUGS (6)
  1. COUMADIN [Concomitant]
     Dosage: 2.5 MG, 1X/DAY
     Route: 048
  2. POTASSIUM PENICILLIN G [Suspect]
     Dosage: UNK
  3. PREDNISONE [Concomitant]
     Dosage: 5 MG, 1X/DAY
     Route: 048
  4. SYNTHROID [Concomitant]
     Dosage: 112 UG, 1X/DAY
     Route: 048
  5. LOSARTAN [Concomitant]
     Dosage: 25 MG, 1X/DAY
     Route: 048
  6. CIPROFLOXACIN [Suspect]
     Dosage: UNK

REACTIONS (1)
  - HYPERSENSITIVITY [None]
